FAERS Safety Report 4921116-7 (Version None)
Quarter: 2006Q1

REPORT INFORMATION
  Report Type: 
  Country: None (occurrence: None)
  Receive Date: 20060223
  Receipt Date: 20051011
  Transmission Date: 20060701
  Serious: Yes (Hospitalization, Other)
  Sender: FDA-Public Use
  Company Number: US-MERCK-0510USA06880

PATIENT
  Age: 81 Year
  Sex: Female
  Weight: 61 kg

DRUGS (14)
  1. VIOXX [Suspect]
     Indication: ARTHRITIS
     Route: 048
     Dates: start: 20010901, end: 20040501
  2. VIOXX [Suspect]
     Route: 048
     Dates: start: 20040601, end: 20040601
  3. VIOXX [Suspect]
     Route: 048
     Dates: start: 20040501, end: 20040901
  4. PRINIVIL [Concomitant]
     Route: 048
     Dates: start: 20020101
  5. AGGRENOX [Concomitant]
     Route: 065
     Dates: start: 20021223
  6. ZOCOR [Concomitant]
     Route: 048
     Dates: start: 20040701, end: 20040901
  7. CARAFATE [Concomitant]
     Route: 065
  8. CARDIZEM [Concomitant]
     Route: 065
  9. ARIMIDEX [Concomitant]
     Route: 065
  10. TAMOXIFEN CITRATE [Concomitant]
     Route: 065
  11. ELAVIL [Concomitant]
     Route: 065
  12. ASPIRIN [Concomitant]
     Route: 065
  13. DETROL [Concomitant]
     Route: 065
  14. VIOKASE [Concomitant]
     Route: 065

REACTIONS (10)
  - AFFERENT LOOP SYNDROME [None]
  - AORTIC ARTERIOSCLEROSIS [None]
  - CARPAL TUNNEL SYNDROME [None]
  - CEREBROVASCULAR ACCIDENT [None]
  - GASTRIC DISORDER [None]
  - GLAUCOMA [None]
  - HYPERTENSION [None]
  - HYPOXIA [None]
  - NASOPHARYNGITIS [None]
  - PANCREATITIS [None]
